FAERS Safety Report 5249982-9 (Version None)
Quarter: 2007Q1

REPORT INFORMATION
  Report Type: 
  Country: None (occurrence: None)
  Receive Date: 20070228
  Receipt Date: 20060112
  Transmission Date: 20070707
  Serious: No
  Sender: FDA-Public Use
  Company Number: US-GLAXOSMITHKLINE-A0589506A

PATIENT
  Age: 19 Year
  Sex: Male

DRUGS (1)
  1. LAMICTAL [Suspect]
     Dosage: 150MG UNKNOWN
     Route: 048

REACTIONS (7)
  - ACNE [None]
  - BACK PAIN [None]
  - DRY MOUTH [None]
  - ERECTILE DYSFUNCTION [None]
  - HAIR COLOUR CHANGES [None]
  - NERVOUSNESS [None]
  - TREMOR [None]
